FAERS Safety Report 9150094 (Version 1)
Quarter: 2013Q1

REPORT INFORMATION
  Report Type: Spontaneous
  Country: US (occurrence: None)
  Receive Date: 20130204
  Receipt Date: 20130204
  Transmission Date: 20140127
  Serious: Yes (Other)
  Sender: FDA-Public Use
  Company Number: US-JNJFOC-20130113636

PATIENT
  Sex: 0

DRUGS (4)
  1. DECITABINE (DECITABINE) LYOPHILIZED POWDER [Suspect]
     Indication: MYELOID LEUKAEMIA
     Dosage: 5 DAY COURSE INTRAVENOUS?
     Route: 042
  2. DAUNORUBICIN [Suspect]
     Indication: MYELOID LEUKAEMIA
  3. CYTARABINE [Suspect]
     Indication: MYELOID LEUKAEMIA
  4. ETOPOSIDE [Suspect]
     Indication: MYELOID LEUKAEMIA

REACTIONS (7)
  - Caecitis [None]
  - Decreased appetite [None]
  - Hypophosphataemia [None]
  - Neutropenia [None]
  - Thrombocytopenia [None]
  - Haematotoxicity [None]
  - Gastrointestinal toxicity [None]
